FAERS Safety Report 5126212-X (Version None)
Quarter: 2006Q4

REPORT INFORMATION
  Report Type: 
  Country: None (occurrence: None)
  Receive Date: 20061012
  Receipt Date: 20051018
  Transmission Date: 20070319
  Serious: Yes (Hospitalization)
  Sender: FDA-Public Use
  Company Number: JP-BOEHRINGER INGELHEIM PHARMACEUTICALS, INC.-2005-BP-18448NB

PATIENT
  Sex: Male

DRUGS (5)
  1. MICARDIS [Suspect]
     Indication: HYPERTENSION
     Route: 048
     Dates: start: 20050510, end: 20050928
  2. ASPIRIN [Concomitant]
     Indication: CEREBRAL INFARCTION
     Route: 048
     Dates: start: 20040720
  3. PHENOBARBITAL TAB [Concomitant]
     Indication: CEREBRAL INFARCTION
     Route: 048
     Dates: start: 20040720
  4. MELBIN [Concomitant]
     Indication: DIABETES MELLITUS NON-INSULIN-DEPENDENT
     Route: 048
     Dates: start: 20050801
  5. ADJUST A (SENNA EXTRACT) [Concomitant]
     Indication: CONSTIPATION
     Route: 048

REACTIONS (1)
  - INTERSTITIAL LUNG DISEASE [None]
